FAERS Safety Report 15492672 (Version 1)
Quarter: 2018Q4

REPORT INFORMATION
  Report Type: Spontaneous
  Country: US (occurrence: US)
  Receive Date: 20180927
  Receipt Date: 20180927
  Transmission Date: 20190205
  Serious: Yes (Life-Threatening, Hospitalization)
  Sender: FDA-Public Use
  Company Number: None

PATIENT
  Age: 80 Year
  Sex: Male
  Weight: 93.8 kg

DRUGS (2)
  1. PLAVIX [Suspect]
     Active Substance: CLOPIDOGREL BISULFATE
  2. WARFARIN [Suspect]
     Active Substance: WARFARIN

REACTIONS (2)
  - Small intestinal haemorrhage [None]
  - Myocardial ischaemia [None]

NARRATIVE: CASE EVENT DATE: 20180923
